FAERS Safety Report 6583746-9 (Version None)
Quarter: 2010Q1

REPORT INFORMATION
  Report Type: 
  Country: None (occurrence: None)
  Receive Date: 20100216
  Receipt Date: 20100208
  Transmission Date: 20100710
  Serious: Yes (Life-Threatening, Congenital Anomaly)
  Sender: FDA-Public Use
  Company Number: GB-MERCK-0910GBR00060B1

PATIENT
  Age: 0 Day
  Sex: Female
  Weight: 2 kg

DRUGS (7)
  1. ISENTRESS [Suspect]
     Indication: HIV INFECTION
     Route: 065
     Dates: start: 20081023
  2. DARUNAVIR [Concomitant]
     Route: 065
     Dates: start: 20091023
  3. ETRAVIRINE [Concomitant]
     Route: 065
     Dates: start: 20081023
  4. RITONAVIR [Concomitant]
     Route: 065
     Dates: start: 20081023
  5. RITONAVIR [Concomitant]
     Route: 065
     Dates: start: 20060905, end: 20081022
  6. EMTRICITABINE AND TENOFOVIR DISOPROXIL FUMARATE [Concomitant]
     Route: 065
     Dates: start: 20060905, end: 20081023
  7. TIPRANAVIR [Concomitant]
     Route: 065
     Dates: start: 20060905, end: 20081023

REACTIONS (16)
  - ANAL ATRESIA [None]
  - BLADDER AGENESIS [None]
  - BLOOD IRON DECREASED [None]
  - CAUDAL REGRESSION SYNDROME [None]
  - CLOACAL EXSTROPHY [None]
  - CONGENITAL GENITAL MALFORMATION [None]
  - DRUG EXPOSURE DURING PREGNANCY [None]
  - EXOMPHALOS [None]
  - GASTROINTESTINAL DISORDER [None]
  - GENITALIA EXTERNAL AMBIGUOUS [None]
  - LIPODYSTROPHY ACQUIRED [None]
  - MECONIUM STAIN [None]
  - MENINGOMYELOCELE [None]
  - MUSCULOSKELETAL DEFORMITY [None]
  - SEPSIS [None]
  - UMBILICAL CORD ABNORMALITY [None]
